FAERS Safety Report 5296199-8 (Version None)
Quarter: 2007Q2

REPORT INFORMATION
  Report Type: 
  Country: None (occurrence: None)
  Receive Date: 20070413
  Receipt Date: 20070410
  Transmission Date: 20071010
  Serious: Yes (Life-Threatening, Hospitalization)
  Sender: FDA-Public Use
  Company Number: JP-GLAXOSMITHKLINE-B0461279A

PATIENT
  Age: 34 Year
  Sex: Male

DRUGS (2)
  1. PAXIL [Suspect]
     Indication: SCHIZOPHRENIA
     Dosage: 20MG PER DAY
     Route: 048
  2. OLANZAPINE [Suspect]
     Indication: SCHIZOPHRENIA
     Dosage: 15MG PER DAY
     Route: 048

REACTIONS (5)
  - CARDIAC FAILURE [None]
  - DEPRESSED LEVEL OF CONSCIOUSNESS [None]
  - HYPERTHERMIA [None]
  - MUSCLE ENZYME INCREASED [None]
  - NEUROLEPTIC MALIGNANT SYNDROME [None]
